FAERS Safety Report 22052755 (Version 2)
Quarter: 2023Q2

REPORT INFORMATION
  Report Type: Report from Study
  Country: US (occurrence: US)
  Receive Date: 20230302
  Receipt Date: 20230508
  Transmission Date: 20230721
  Serious: Yes (Other)
  Sender: FDA-Public Use
  Company Number: US-ABBVIE-4322930

PATIENT
  Age: 66 Year
  Sex: Female
  Weight: 83 kg

DRUGS (2)
  1. RINVOQ [Suspect]
     Active Substance: UPADACITINIB
     Indication: Colitis ulcerative
     Route: 048
     Dates: start: 20201019, end: 2023
  2. RINVOQ [Suspect]
     Active Substance: UPADACITINIB
     Indication: Colitis ulcerative
     Dosage: LAST ADMIN DATE: 2023
     Route: 048
     Dates: start: 20230328

REACTIONS (6)
  - Squamous cell carcinoma of skin [Recovering/Resolving]
  - Exposure to radiation [Recovering/Resolving]
  - Heavy exposure to ultraviolet light [Recovering/Resolving]
  - Occupational exposure to sunlight [Recovering/Resolving]
  - Exposure to toxic agent [Recovering/Resolving]
  - Occupational exposure to toxic agent [Recovering/Resolving]

NARRATIVE: CASE EVENT DATE: 20230320
